FAERS Safety Report 21376274 (Version 1)
Quarter: 2022Q3

REPORT INFORMATION
  Report Type: Spontaneous
  Country: US (occurrence: None)
  Receive Date: 20220923
  Receipt Date: 20220923
  Transmission Date: 20221027
  Serious: No
  Sender: FDA-Public Use
  Company Number: None

PATIENT
  Age: 36 Year
  Sex: Female
  Weight: 49.5 kg

DRUGS (1)
  1. BUPRENORPHINE [Suspect]
     Active Substance: BUPRENORPHINE

REACTIONS (4)
  - Tooth disorder [None]
  - Dental caries [None]
  - Tooth fracture [None]
  - Bone loss [None]

NARRATIVE: CASE EVENT DATE: 20220502
